FAERS Safety Report 14031536 (Version 1)
Quarter: 2017Q4

REPORT INFORMATION
  Report Type: Report from Study
  Country: None (occurrence: GB)
  Receive Date: 20171003
  Receipt Date: 20171003
  Transmission Date: 20180321
  Serious: Yes (Disabling)
  Sender: FDA-Public Use
  Company Number: GB-ABBVIE-17K-167-2090500-00

PATIENT
  Age: 78 Year
  Sex: Male

DRUGS (2)
  1. HUMIRA [Suspect]
     Active Substance: ADALIMUMAB
     Route: 058
     Dates: start: 20170901
  2. HUMIRA [Suspect]
     Active Substance: ADALIMUMAB
     Indication: CROHN^S DISEASE
     Route: 058
     Dates: start: 20170817, end: 20170817

REACTIONS (15)
  - Dysarthria [Recovering/Resolving]
  - Haematochezia [Recovering/Resolving]
  - Facial paresis [Unknown]
  - Musculoskeletal pain [Unknown]
  - Malaise [Unknown]
  - Palpitations [Unknown]
  - Diarrhoea [Recovering/Resolving]
  - Hemiparesis [Recovering/Resolving]
  - Migraine [Recovering/Resolving]
  - Feeling abnormal [Unknown]
  - Muscular weakness [Unknown]
  - Facial pain [Unknown]
  - Pain in extremity [Unknown]
  - Abdominal pain [Unknown]
  - Pain [Unknown]

NARRATIVE: CASE EVENT DATE: 2017
